FAERS Safety Report 9538756 (Version 1)
Quarter: 2013Q2

REPORT INFORMATION
  Report Type: Spontaneous
  Country: US (occurrence: None)
  Receive Date: 20130517
  Receipt Date: 20130517
  Transmission Date: 20140414
  Serious: No
  Sender: FDA-Public Use
  Company Number: 1000044160

PATIENT
  Age: 60 Year
  Sex: Female

DRUGS (15)
  1. VIIBRYD (VILAZODONE HYDROCHLORIDE) (40 MILLIGRAM, TABLETS) [Suspect]
     Indication: DEPRESSION
     Route: 048
     Dates: end: 201303
  2. VIIBRYD (VILAZODONE HYDROCHLORIDE) (40 MILLIGRAM, TABLETS) [Suspect]
     Indication: DEPRESSION
     Route: 048
     Dates: start: 2013, end: 2013
  3. XANAX [Concomitant]
  4. BONIVA (IBANDRONATE SODIUM) (IBANDRONATE SODIUM0 [Concomitant]
  5. IBUPROFEN (IBUPROFEN) [Concomitant]
  6. TYLENOL (ACETAMINOPHEN) (ACETAMINOPHEN) [Concomitant]
  7. VITAMINS NOS (VITAMINS NOS) [Concomitant]
  8. BENADRYL (DIPHENHYDRAMINE) (DIPHENHYDRAMINE) [Concomitant]
  9. VITAMIN-C (ASCORBIC ACID) (ASCORBIC ACID) [Concomitant]
  10. PROBIOTIC OTC (PROBIOTIC OTC) [Concomitant]
  11. FIBER SUPPLEMENT (FIBER SUPPLEMENT) [Concomitant]
  12. PRILOSEC [Concomitant]
  13. CALCIUM CITRATE (CALCIUM CITRATE) [Concomitant]
  14. VISTARIL (HYDROXYZINE) [Concomitant]
  15. DEPLIN (CALCIUM LEVOMEFOLTE) [Concomitant]

REACTIONS (4)
  - Tinnitus [None]
  - Headache [None]
  - Feeling hot [None]
  - Medication error [None]
